FAERS Safety Report 14458839 (Version 1)
Quarter: 2018Q1

REPORT INFORMATION
  Report Type: Spontaneous
  Country: US (occurrence: US)
  Receive Date: 20180130
  Receipt Date: 20180130
  Transmission Date: 20180509
  Serious: No
  Sender: FDA-Public Use
  Company Number: US-VIFOR (INTERNATIONAL) INC.-VIT-2018-00289

PATIENT
  Age: 55 Year
  Sex: Female
  Weight: 77.5 kg

DRUGS (27)
  1. MIRCERA [Suspect]
     Active Substance: METHOXY POLYETHYLENE GLYCOL-EPOETIN BETA
     Indication: ANAEMIA
     Route: 040
     Dates: start: 20171113
  2. MIRCERA [Suspect]
     Active Substance: METHOXY POLYETHYLENE GLYCOL-EPOETIN BETA
     Route: 040
     Dates: start: 20171222
  3. HUAMLOG [Concomitant]
     Indication: DIABETES MELLITUS
     Route: 058
     Dates: start: 20170923
  4. LACTULOSE. [Concomitant]
     Active Substance: LACTULOSE
     Indication: DIARRHOEA
     Route: 048
     Dates: start: 20170923
  5. ZEMPLAR [Concomitant]
     Active Substance: PARICALCITOL
     Indication: HYPERPARATHYROIDISM SECONDARY
     Route: 040
     Dates: start: 20171104
  6. RENVELA [Concomitant]
     Active Substance: SEVELAMER CARBONATE
     Route: 048
     Dates: start: 20171020
  7. TRAMADOL. [Concomitant]
     Active Substance: TRAMADOL
     Indication: PAIN
     Route: 048
     Dates: start: 20170923
  8. ZOFRAN [Concomitant]
     Active Substance: ONDANSETRON HYDROCHLORIDE
     Indication: NAUSEA
     Route: 060
     Dates: start: 20171204
  9. ALLOPURINOL. [Concomitant]
     Active Substance: ALLOPURINOL
     Indication: GOUT
     Route: 048
     Dates: start: 20171221
  10. ENGERIX-B [Concomitant]
     Active Substance: HEPATITIS B VIRUS SUBTYPE ADW2 HBSAG SURFACE PROTEIN ANTIGEN
     Indication: IMMUNISATION
     Route: 030
     Dates: start: 20171101
  11. HEPARIN [Concomitant]
     Active Substance: HEPARIN SODIUM
     Dosage: 5000U/ML
     Dates: start: 20171012
  12. MIRCERA [Concomitant]
     Active Substance: METHOXY POLYETHYLENE GLYCOL-EPOETIN BETA
     Indication: NEPHROGENIC ANAEMIA
     Route: 042
     Dates: start: 20171110
  13. PROTONIX [Concomitant]
     Active Substance: PANTOPRAZOLE SODIUM
     Indication: OESOPHAGITIS
     Route: 048
     Dates: start: 20170923
  14. PREDNISONE. [Concomitant]
     Active Substance: PREDNISONE
     Route: 048
     Dates: start: 20171221
  15. ERGOCALCIFEROL. [Concomitant]
     Active Substance: ERGOCALCIFEROL
     Indication: SUPPLEMENTATION THERAPY
     Route: 048
     Dates: start: 20171020
  16. ZOLOFT [Concomitant]
     Active Substance: SERTRALINE HYDROCHLORIDE
     Indication: BIPOLAR DISORDER
     Route: 048
     Dates: start: 20170923
  17. BUMEX [Concomitant]
     Active Substance: BUMETANIDE
     Indication: DIURETIC THERAPY
     Route: 048
     Dates: start: 20171113
  18. BUMEX [Concomitant]
     Active Substance: BUMETANIDE
     Indication: END STAGE RENAL DISEASE
  19. POTASSIUM CHLORIDE. [Concomitant]
     Active Substance: POTASSIUM CHLORIDE
     Indication: HYPOKALAEMIA
     Route: 048
     Dates: start: 20171201
  20. MIDODRINE HYDROCHLORIDE. [Concomitant]
     Active Substance: MIDODRINE HYDROCHLORIDE
     Indication: HYPOTENSION
     Route: 048
     Dates: start: 20170923
  21. HEPARIN [Concomitant]
     Active Substance: HEPARIN SODIUM
     Indication: END STAGE RENAL DISEASE
     Dosage: 5000U/ML
     Dates: start: 20171012
  22. LEVOTHYROXINE. [Concomitant]
     Active Substance: LEVOTHYROXINE
     Indication: HYPOTHYROIDISM
     Route: 048
     Dates: start: 20170923
  23. CEFALEXIN [Concomitant]
     Active Substance: CEPHALEXIN
     Indication: INFECTION
     Route: 048
     Dates: start: 20170923
  24. NEPHRO VITE RX [Concomitant]
     Active Substance: ASCORBIC ACID\BIOTIN\CALCIUM PANTOTHENATE\CYANOCOBALAMIN\FOLIC ACID\NIACINAMIDE\PYRIDOXINE HYDROCHLORIDE\RIBOFLAVIN\THIAMINE MONONITRATE
     Indication: SUPPLEMENTATION THERAPY
     Route: 048
     Dates: start: 20171020
  25. XIFAXAN [Concomitant]
     Active Substance: RIFAXIMIN
     Indication: IRRITABLE BOWEL SYNDROME
     Route: 048
     Dates: start: 20170923
  26. VENOFER [Concomitant]
     Active Substance: IRON SUCROSE
     Indication: IRON DEFICIENCY ANAEMIA
     Route: 040
     Dates: start: 20171113
  27. VENOFER [Concomitant]
     Active Substance: IRON SUCROSE
     Indication: IRON DEFICIENCY

REACTIONS (2)
  - No adverse event [Recovered/Resolved]
  - Inappropriate schedule of drug administration [Recovered/Resolved]

NARRATIVE: CASE EVENT DATE: 20171224
